FAERS Safety Report 6473626-1 (Version None)
Quarter: 2009Q4

REPORT INFORMATION
  Report Type: 
  Country: None (occurrence: None)
  Receive Date: 20091204
  Receipt Date: 20091201
  Transmission Date: 20100525
  Serious: Yes (Other)
  Sender: FDA-Public Use
  Company Number: FI-JNJFOC-20091108102

PATIENT
  Age: 72 Year
  Sex: Female
  Weight: 64.6 kg

DRUGS (17)
  1. REMICADE [Suspect]
     Dosage: 3 TOTAL INFUSIONS
     Route: 042
     Dates: start: 20090501, end: 20090701
  2. REMICADE [Suspect]
     Indication: RHEUMATOID ARTHRITIS
     Route: 042
     Dates: start: 20090501, end: 20090701
  3. METHOTREXATE [Suspect]
  4. METHOTREXATE [Suspect]
     Indication: RHEUMATOID ARTHRITIS
  5. TUBILYSIN [Suspect]
  6. TUBILYSIN [Suspect]
     Indication: TUBERCULOSIS
  7. RIMAPEN [Suspect]
  8. RIMAPEN [Suspect]
     Indication: TUBERCULOSIS
  9. TISAMID [Suspect]
  10. TISAMID [Suspect]
     Indication: TUBERCULOSIS
  11. VITAMIN B6 [Suspect]
  12. VITAMIN B6 [Suspect]
     Indication: TUBERCULOSIS
  13. OXIKLORIN [Concomitant]
  14. SALAZOPYRIN [Concomitant]
  15. MYOCRISIN [Concomitant]
  16. OPTINATE SEPTIMUM [Concomitant]
  17. KALCIPOS-D [Concomitant]

REACTIONS (6)
  - DIARRHOEA [None]
  - HAEMORRHOIDAL HAEMORRHAGE [None]
  - LIVER FUNCTION TEST ABNORMAL [None]
  - LYMPH NODE TUBERCULOSIS [None]
  - PULMONARY TUBERCULOSIS [None]
  - THROMBOCYTOPENIA [None]
